FAERS Safety Report 24565362 (Version 1)
Quarter: 2024Q4

REPORT INFORMATION
  Report Type: Report from Study
  Country: GB (occurrence: GB)
  Receive Date: 20241030
  Receipt Date: 20241030
  Transmission Date: 20250114
  Serious: Yes (Other)
  Sender: NOVARTIS
  Company Number: GB-002147023-NVSC2023GB077977

PATIENT
  Age: 51 Year
  Sex: Female

DRUGS (2)
  1. MAYZENT [Suspect]
     Active Substance: SIPONIMOD
     Indication: Multiple sclerosis
     Dosage: 0.25 MG, QD
     Route: 048
     Dates: start: 20230403
  2. MAYZENT [Suspect]
     Active Substance: SIPONIMOD
     Indication: Secondary progressive multiple sclerosis
     Dosage: 2 MG, QD
     Route: 048

REACTIONS (20)
  - Lower respiratory tract infection [Recovering/Resolving]
  - Palpitations [Not Recovered/Not Resolved]
  - Band sensation [Unknown]
  - Fatigue [Not Recovered/Not Resolved]
  - Influenza like illness [Unknown]
  - Pain [Unknown]
  - Lymphadenopathy [Unknown]
  - Asthma [Unknown]
  - Vision blurred [Unknown]
  - Fall [Recovered/Resolved]
  - Abdominal discomfort [Recovering/Resolving]
  - Headache [Unknown]
  - Pain in extremity [Unknown]
  - Lymphocyte count decreased [Unknown]
  - Amnesia [Unknown]
  - COVID-19 [Unknown]
  - Dyspnoea [Unknown]
  - Cough [Unknown]
  - Ear infection [Unknown]
  - Cystitis [Unknown]

NARRATIVE: CASE EVENT DATE: 20230403
